FAERS Safety Report 16970999 (Version 1)
Quarter: 2019Q4

REPORT INFORMATION
  Report Type: Spontaneous
  Country: AU (occurrence: AU)
  Receive Date: 20191029
  Receipt Date: 20191029
  Transmission Date: 20200122
  Serious: Yes (Other)
  Sender: FDA-Public Use
  Company Number: AU-009507513-1910AUS014299

PATIENT
  Age: 57 Year
  Sex: Male

DRUGS (1)
  1. PEMBROLIZUMAB. [Suspect]
     Active Substance: PEMBROLIZUMAB
     Indication: METASTATIC MALIGNANT MELANOMA
     Dosage: 200 MILLIGRAM, Q3W; 32 DOSES UNTIL CESSATION
     Route: 042

REACTIONS (4)
  - Hypotony of eye [Not Recovered/Not Resolved]
  - Autoimmune arthritis [Recovered/Resolved]
  - Interstitial lung disease [Not Recovered/Not Resolved]
  - Blindness [Not Recovered/Not Resolved]
